FAERS Safety Report 5000654-5 (Version None)
Quarter: 2006Q2

REPORT INFORMATION
  Report Type: 
  Country: None (occurrence: None)
  Receive Date: 20060512
  Receipt Date: 20060503
  Transmission Date: 20061013
  Serious: Yes (Hospitalization)
  Sender: FDA-Public Use
  Company Number: 2006UW08688

PATIENT
  Age: 19947 Day
  Sex: Male
  Weight: 92.3 kg

DRUGS (22)
  1. IRESSA [Suspect]
     Indication: SQUAMOUS CELL CARCINOMA
     Dosage: WEEK 8
     Route: 048
     Dates: start: 20051227
  2. TAXOTERE [Suspect]
     Indication: SQUAMOUS CELL CARCINOMA
     Route: 042
     Dates: start: 20060214, end: 20060321
  3. TAXOTERE [Suspect]
     Route: 042
     Dates: start: 20051227, end: 20060117
  4. CARBOPLATIN [Suspect]
     Indication: SQUAMOUS CELL CARCINOMA
     Dosage: 5 AUC
     Route: 042
     Dates: start: 20051227, end: 20060117
  5. FLUOROURACIL [Suspect]
     Indication: SQUAMOUS CELL CARCINOMA
     Route: 042
     Dates: start: 20051227, end: 20060207
  6. PAXIL [Concomitant]
     Indication: DEPRESSION
     Dates: start: 20051120
  7. PIPERACILLIN AND TAZOBACTAM [Concomitant]
     Dosage: 2 G/0.25 G
     Dates: start: 20060409, end: 20060411
  8. VANCOMYCIN [Concomitant]
     Dates: start: 20060409, end: 20060411
  9. VANCOMYCIN [Concomitant]
     Dates: start: 20060411, end: 20060411
  10. ACETAMINOPHEN [Concomitant]
     Indication: PYREXIA
  11. LEVAQUIN [Concomitant]
     Dates: start: 20060409, end: 20060409
  12. LOPERAMIDE [Concomitant]
     Indication: DIARRHOEA
     Dates: start: 20060410, end: 20060410
  13. SODIUM CHLORIDE [Concomitant]
     Route: 042
     Dates: start: 20060404, end: 20060411
  14. AUGMENTIN '125' [Concomitant]
     Dates: start: 20060403, end: 20060409
  15. AMBIEN [Concomitant]
     Indication: INSOMNIA
     Dates: start: 20051120, end: 20060409
  16. LORAZEPAM [Concomitant]
     Indication: ANXIETY
     Dates: start: 20051120
  17. ZYVOX [Concomitant]
     Dates: start: 20060411
  18. DIPHENHYDRAMINE HCL [Concomitant]
     Dates: start: 20060409
  19. HYDROCODONE [Concomitant]
     Indication: PAIN
     Dates: start: 20060409
  20. HYDROMORPHONE HCL [Concomitant]
     Indication: PAIN
     Dosage: 0.5-2 MG
     Dates: start: 20060409
  21. TEMAZEPAM [Concomitant]
     Indication: INSOMNIA
     Dates: start: 20060409
  22. CLINDAMYCIN PHOSPHATE [Concomitant]
     Route: 061
     Dates: start: 20060409

REACTIONS (4)
  - CULTURE WOUND POSITIVE [None]
  - FOLLICULITIS [None]
  - IMPLANT SITE EROSION [None]
  - PSEUDOMONAS INFECTION [None]
